FAERS Safety Report 8588446-1 (Version None)
Quarter: 2012Q3

REPORT INFORMATION
  Report Type: 
  Country: None (occurrence: None)
  Receive Date: 20120813
  Receipt Date: 20120801
  Transmission Date: 20120928
  Serious: Yes (Hospitalization)
  Sender: FDA-Public Use
  Company Number: US-BAYER-2012-078945

PATIENT
  Age: 29 Year
  Sex: Female

DRUGS (4)
  1. SYNTHROID [Concomitant]
     Dosage: 0.25 MG, QD
     Dates: start: 20100728
  2. TOPAMAX [Concomitant]
     Dosage: 25 MG, BID
     Dates: start: 20100728
  3. IMITREX [Concomitant]
     Indication: MIGRAINE
     Dosage: UNK
     Dates: start: 20100728
  4. YAZ [Suspect]
     Dosage: UNK
     Dates: start: 20100126, end: 20100728

REACTIONS (2)
  - DEEP VEIN THROMBOSIS [None]
  - PULMONARY EMBOLISM [None]
